FAERS Safety Report 11344059 (Version 1)
Quarter: 2015Q3

REPORT INFORMATION
  Report Type: Spontaneous
  Country: BR (occurrence: BR)
  Receive Date: 20150806
  Receipt Date: 20150806
  Transmission Date: 20151125
  Serious: Yes (Other)
  Sender: FDA-Public Use
  Company Number: BR-JNJFOC-20150800612

PATIENT
  Age: 63 Year
  Sex: Male

DRUGS (1)
  1. REMICADE [Suspect]
     Active Substance: INFLIXIMAB
     Indication: RHEUMATOID ARTHRITIS
     Route: 042

REACTIONS (11)
  - Infusion related reaction [Unknown]
  - Cyanosis [Unknown]
  - Feeling hot [Unknown]
  - Heart rate increased [Unknown]
  - Feeling abnormal [Unknown]
  - Discomfort [Unknown]
  - Vomiting [Unknown]
  - Hypoxia [Unknown]
  - Blood pressure systolic increased [Unknown]
  - Nausea [Unknown]
  - Dizziness [Unknown]

NARRATIVE: CASE EVENT DATE: 20150508
